FAERS Safety Report 14331880 (Version 5)
Quarter: 2019Q4

REPORT INFORMATION
  Report Type: Spontaneous
  Country: US (occurrence: US)
  Receive Date: 20171228
  Receipt Date: 20191210
  Transmission Date: 20200122
  Serious: Yes (Other)
  Sender: FDA-Public Use
  Company Number: US-UCBSA-2016029029

PATIENT
  Age: 15 Year
  Sex: Male

DRUGS (6)
  1. KEPPRA [Suspect]
     Active Substance: LEVETIRACETAM
     Indication: MYOCLONIC EPILEPSY
     Dosage: 500 MG, 2X/DAY (BID)
     Dates: start: 20160620, end: 20160620
  2. KEPPRA [Suspect]
     Active Substance: LEVETIRACETAM
     Indication: JUVENILE MYOCLONIC EPILEPSY
     Dosage: 500 MG IN MORNING AND 1000 MG IN EVENING
     Dates: start: 20160620, end: 2016
  3. KEPPRA [Suspect]
     Active Substance: LEVETIRACETAM
     Dosage: DOSE INCRESED
     Dates: start: 2018
  4. KEPPRA [Suspect]
     Active Substance: LEVETIRACETAM
     Dosage: 1.5 TABS (STRENGTH: 500MG) PER DAY
     Dates: start: 20180504, end: 2018
  5. KEPPRA XR [Suspect]
     Active Substance: LEVETIRACETAM
     Indication: PRODUCT USED FOR UNKNOWN INDICATION
     Dosage: 2 TABS OF 500 MG AND 3 TABS OF 750 MG PER DAY
     Dates: start: 20180504
  6. KEPPRA [Suspect]
     Active Substance: LEVETIRACETAM
     Dosage: 1000 MG EVERY MORNING AND 2250 MG EVERY EVENING
     Dates: start: 2016

REACTIONS (11)
  - Off label use [Unknown]
  - Prescribed overdose [Unknown]
  - Generalised tonic-clonic seizure [Recovered/Resolved]
  - Depersonalisation/derealisation disorder [Not Recovered/Not Resolved]
  - Overdose [Unknown]
  - Anxiety [Not Recovered/Not Resolved]
  - Incorrect dose administered [Unknown]
  - Wrong technique in product usage process [Unknown]
  - Myoclonus [Not Recovered/Not Resolved]
  - Product dose omission [Unknown]
  - Intentional product misuse [Unknown]

NARRATIVE: CASE EVENT DATE: 2016
